FAERS Safety Report 6633304-2 (Version None)
Quarter: 2010Q1

REPORT INFORMATION
  Report Type: 
  Country: None (occurrence: None)
  Receive Date: 20100312
  Receipt Date: 20090915
  Transmission Date: 20100710
  Serious: No
  Sender: FDA-Public Use
  Company Number: US-ABBOTT-09P-163-0598251-00

PATIENT
  Sex: Female
  Weight: 45.4 kg

DRUGS (7)
  1. ERYPED [Suspect]
     Indication: GASTROINTESTINAL MOTILITY DISORDER
     Dates: start: 20090101
  2. SINGULAIR [Concomitant]
     Indication: ASTHMA
     Dosage: DAILY
  3. CLARITIN [Concomitant]
     Indication: ASTHMA
  4. PEPCID [Concomitant]
     Indication: GASTROINTESTINAL MOTILITY DISORDER
     Dosage: DAILY
  5. ACIDOPHILUS [Concomitant]
     Indication: GASTROINTESTINAL MOTILITY DISORDER
     Dosage: DAILY
  6. TUMS [Concomitant]
     Indication: OSTEOPOROSIS
     Dosage: DAILY
  7. VITAMIN D [Concomitant]
     Indication: OSTEOPOROSIS
     Dosage: DAILY

REACTIONS (2)
  - DRUG DOSE OMISSION [None]
  - DYSPNOEA [None]
